FAERS Safety Report 6297599-X (Version None)
Quarter: 2009Q3

REPORT INFORMATION
  Report Type: 
  Country: None (occurrence: None)
  Receive Date: 20090805
  Receipt Date: 20090727
  Transmission Date: 20100115
  Serious: Yes (Hospitalization)
  Sender: FDA-Public Use
  Company Number: JP-ASTRAZENECA-2009SE06624

PATIENT
  Sex: Female

DRUGS (11)
  1. BLOPRESS [Suspect]
     Indication: HYPERTENSION
     Route: 048
     Dates: end: 20090523
  2. PARIET [Concomitant]
     Indication: REFLUX OESOPHAGITIS
     Route: 048
     Dates: end: 20090523
  3. SINGULAIR [Concomitant]
     Indication: ASTHMA
     Route: 048
     Dates: end: 20090523
  4. SIGMART [Concomitant]
     Indication: ANGINA PECTORIS
     Route: 048
  5. CALBLOCK [Concomitant]
     Indication: HYPERTENSION
     Route: 048
  6. HALF DIGOXIN [Concomitant]
     Indication: TACHYCARDIA PAROXYSMAL
     Route: 048
  7. VASOLAN [Concomitant]
     Indication: TACHYCARDIA PAROXYSMAL
     Route: 048
  8. GRANDAXIN [Concomitant]
     Indication: AUTONOMIC NERVOUS SYSTEM IMBALANCE
     Route: 048
  9. GASMOTIN [Concomitant]
     Indication: GASTRITIS
     Route: 048
  10. ALESION [Concomitant]
     Indication: ASTHMA
     Route: 048
  11. THEO SLOW [Concomitant]
     Indication: ASTHMA
     Route: 048

REACTIONS (1)
  - RHABDOMYOLYSIS [None]
